FAERS Safety Report 13339675 (Version 2)
Quarter: 2017Q1

REPORT INFORMATION
  Report Type: Not Available
  Country: US (occurrence: US)
  Receive Date: 20170315
  Receipt Date: 20170316
  Transmission Date: 20170428
  Serious: No
  Sender: FDA-Public Use
  Company Number: US-ANIPHARMA-2017-US-001569

PATIENT
  Age: 64 Year
  Sex: Male

DRUGS (1)
  1. TESTOSTERONE GEL 1% (NON-SPECIFIC) [Suspect]
     Active Substance: TESTOSTERONE
     Route: 065

REACTIONS (1)
  - Hypersensitivity [Unknown]
